FAERS Safety Report 6342689-6 (Version None)
Quarter: 2009Q3

REPORT INFORMATION
  Report Type: 
  Country: None (occurrence: None)
  Receive Date: 20090908
  Receipt Date: 20070313
  Transmission Date: 20100115
  Serious: No
  Sender: FDA-Public Use
  Company Number: DE-ROCHE-487864

PATIENT
  Sex: Female

DRUGS (1)
  1. TAMIFLU [Suspect]
     Indication: FEBRILE INFECTION
     Route: 065
     Dates: start: 20070303

REACTIONS (1)
  - PREGNANCY [None]
